FAERS Safety Report 4584841-6 (Version None)
Quarter: 2005Q1

REPORT INFORMATION
  Report Type: 
  Country: None (occurrence: None)
  Receive Date: 20050214
  Receipt Date: 20050207
  Transmission Date: 20050727
  Serious: Yes (Disabling)
  Sender: FDA-Public Use
  Company Number: 0104-1940

PATIENT
  Sex: Male

DRUGS (1)
  1. ADVICOR [Suspect]

REACTIONS (7)
  - APATHY [None]
  - ARTHRALGIA [None]
  - ARTHRITIS [None]
  - ASTHENIA [None]
  - INFLUENZA [None]
  - JOINT SWELLING [None]
  - MYALGIA [None]
